FAERS Safety Report 20000239 (Version 2)
Quarter: 2021Q4

REPORT INFORMATION
  Report Type: Report from Study
  Country: HU (occurrence: HU)
  Receive Date: 20211026
  Receipt Date: 20211109
  Transmission Date: 20220303
  Serious: Yes (Hospitalization)
  Sender: FDA-Public Use
  Company Number: HU-ABBVIE-21P-076-4105973-00

PATIENT
  Age: 70 Year
  Sex: Female
  Weight: 55 kg

DRUGS (14)
  1. VENETOCLAX [Suspect]
     Active Substance: VENETOCLAX
     Indication: Acute myeloid leukaemia
     Dosage: ON DAYS 1 -21; 28-DAY CYCLE
     Route: 048
     Dates: start: 20210621, end: 20210930
  2. AZACITIDINE [Suspect]
     Active Substance: AZACITIDINE
     Indication: Acute myeloid leukaemia
     Dosage: DAYS 1 - 5 OF EACH 28-DAY CYCLE UP TO 6 CYCLES
     Route: 058
     Dates: start: 20210621, end: 20210917
  3. D3 VITAMINE [Concomitant]
     Indication: COVID-19 prophylaxis
     Route: 048
     Dates: start: 20200911
  4. SULFAMETHOXAZOLE\TRIMETHOPRIM [Concomitant]
     Active Substance: SULFAMETHOXAZOLE\TRIMETHOPRIM
     Indication: Antibiotic prophylaxis
     Route: 048
     Dates: start: 20201021
  5. ALLOPURINOL [Concomitant]
     Active Substance: ALLOPURINOL
     Indication: Prophylaxis
     Route: 048
     Dates: start: 20200923
  6. TELVIRAN [Concomitant]
     Indication: Antiviral prophylaxis
     Route: 048
     Dates: start: 20201021
  7. INDASTAD [Concomitant]
     Indication: Hypertension
     Route: 048
     Dates: start: 2004
  8. PROLIA [Concomitant]
     Active Substance: DENOSUMAB
     Indication: Osteoporosis
     Route: 042
     Dates: start: 2004
  9. PROLIA [Concomitant]
     Active Substance: DENOSUMAB
     Indication: Rheumatoid arthritis
  10. ROSUVASTATIN [Concomitant]
     Active Substance: ROSUVASTATIN
     Indication: Hyperlipidaemia
     Route: 048
     Dates: start: 2004
  11. FILGRASTIM [Concomitant]
     Active Substance: FILGRASTIM
     Indication: Neutropenia
     Route: 058
     Dates: start: 20210920
  12. CINOLAZEPAM [Concomitant]
     Active Substance: CINOLAZEPAM
     Indication: Muscle relaxant therapy
     Route: 048
     Dates: start: 20200928
  13. ALFACALCIDOL [Concomitant]
     Active Substance: ALFACALCIDOL
     Indication: Osteoporosis
     Route: 048
     Dates: start: 20200911
  14. SULFASALAZINE [Concomitant]
     Active Substance: SULFASALAZINE
     Indication: Rheumatoid arthritis
     Route: 048
     Dates: start: 2005

REACTIONS (1)
  - Bacillus infection [Not Recovered/Not Resolved]

NARRATIVE: CASE EVENT DATE: 20211003
